FAERS Safety Report 11573184 (Version 1)
Quarter: 2015Q3

REPORT INFORMATION
  Report Type: Spontaneous
  Country: US (occurrence: US)
  Receive Date: 20150916
  Receipt Date: 20150916
  Transmission Date: 20151125
  Serious: No
  Sender: FDA-Public Use
  Company Number: US-ELI_LILLY_AND_COMPANY-US200910007133

PATIENT
  Age: 64 Year
  Sex: Female

DRUGS (1)
  1. FORTEO [Suspect]
     Active Substance: TERIPARATIDE
     Indication: OSTEOPOROSIS

REACTIONS (7)
  - Arthralgia [Unknown]
  - Injection site pain [Unknown]
  - Muscle spasms [Unknown]
  - Injection site swelling [Unknown]
  - Injection site pruritus [Unknown]
  - Dizziness [Unknown]
  - Injection site bruising [Unknown]
